FAERS Safety Report 6257208-2 (Version None)
Quarter: 2009Q3

REPORT INFORMATION
  Report Type: 
  Country: None (occurrence: None)
  Receive Date: 20090706
  Receipt Date: 20090623
  Transmission Date: 20100115
  Serious: Yes (Death)
  Sender: FDA-Public Use
  Company Number: FR-ELI_LILLY_AND_COMPANY-FR200906005528

PATIENT
  Age: 36 Year
  Sex: Male

DRUGS (3)
  1. ZYPREXA [Suspect]
     Indication: SCHIZOAFFECTIVE DISORDER
     Dosage: UNK, UNK
     Dates: start: 20060101, end: 20071201
  2. ZYPREXA [Suspect]
     Dosage: 50 MG, DAILY (1/D)
     Route: 048
     Dates: start: 20071201
  3. ZYPREXA [Suspect]
     Dosage: UNK, UNKNOWN

REACTIONS (2)
  - DRUG TOXICITY [None]
  - OVERDOSE [None]
